FAERS Safety Report 7352562-2 (Version None)
Quarter: 2011Q1

REPORT INFORMATION
  Report Type: 
  Country: None (occurrence: None)
  Receive Date: 20110315
  Receipt Date: 20110309
  Transmission Date: 20110831
  Serious: Yes (Other)
  Sender: FDA-Public Use
  Company Number: CH-PFIZER INC-2011051251

PATIENT
  Sex: Male

DRUGS (2)
  1. SALAZOPYRIN [Suspect]
     Dosage: 500 MG, UNK
  2. SALAZOPYRIN [Suspect]
     Dosage: UNK
     Dates: start: 20110101

REACTIONS (2)
  - ABDOMINAL DISCOMFORT [None]
  - DYSPNOEA [None]
